FAERS Safety Report 4664825-X (Version None)
Quarter: 2005Q2

REPORT INFORMATION
  Report Type: 
  Country: None (occurrence: None)
  Receive Date: 20050516
  Receipt Date: 20050428
  Transmission Date: 20051028
  Serious: Yes (Hospitalization)
  Sender: FDA-Public Use
  Company Number: FR-2005-006455

PATIENT
  Age: 74 Year
  Sex: Female

DRUGS (2)
  1. FLUDARA [Suspect]
     Indication: B-CELL LYMPHOMA
     Dosage: 60 MG, 4 CYCLES X 3D, ORAL
     Route: 048
     Dates: start: 20040705, end: 20041130
  2. MABTHERA (RITUXIMAB) [Suspect]
     Indication: B-CELL LYMPHOMA
     Dosage: 600MG, 4 CYCLES X 1D, INTRAVENOUS
     Route: 042
     Dates: start: 20040705, end: 20041128

REACTIONS (2)
  - RECURRENT CANCER [None]
  - VULVAL CANCER [None]
